FAERS Safety Report 8859383 (Version 3)
Quarter: 2013Q2

REPORT INFORMATION
  Report Type: Spontaneous
  Country: US (occurrence: US)
  Receive Date: 20121024
  Receipt Date: 20130603
  Transmission Date: 20140414
  Serious: No
  Sender: FDA-Public Use
  Company Number: US-009507513-1210USA009256

PATIENT
  Sex: Female

DRUGS (4)
  1. PEGINTRON [Suspect]
     Indication: HEPATITIS C
     Dosage: 150 MICROGRAM, UNK
     Dates: start: 20121015
  2. PEGINTRON [Suspect]
     Dosage: 130 MICROGRAM, UNK
     Dates: start: 2012
  3. RIBAVIRIN [Suspect]
     Indication: HEPATITIS C
     Dosage: UNK
     Dates: start: 20121015
  4. VICTRELIS [Suspect]
     Indication: HEPATITIS C
     Dosage: UNK
     Dates: start: 20121119

REACTIONS (11)
  - Influenza like illness [Unknown]
  - Oral pain [Unknown]
  - Ear pain [Unknown]
  - Thrombocytopenia [Unknown]
  - Headache [Unknown]
  - Back pain [Unknown]
  - Dehydration [Unknown]
  - Weight increased [Unknown]
  - Dysgeusia [Unknown]
  - Fatigue [Unknown]
  - Depression [Unknown]
